FAERS Safety Report 7613112-6 (Version None)
Quarter: 2011Q3

REPORT INFORMATION
  Report Type: 
  Country: None (occurrence: None)
  Receive Date: 20110708
  Receipt Date: 20110627
  Transmission Date: 20111222
  Serious: Yes (Disabling, Other)
  Sender: FDA-Public Use
  Company Number: 1000021742

PATIENT
  Age: 57 Year
  Sex: Female
  Weight: 62.5964 kg

DRUGS (5)
  1. ROFLUMILAST (ROFLUMILAST) (TABLETS) [Suspect]
     Dosage: 500 MCG (500 MCG,1 IN 1 D),ORAL
     Route: 048
     Dates: start: 20110420, end: 20110423
  2. SPIRIVA (TIOTROPIUM BROMIDE) (TIOTROPIUM BROMIDE) [Concomitant]
  3. ADVAIR (FLUTICASONE, SALMETEROL) (FLUTICASONE SALMETEROL) [Concomitant]
  4. ALVESCO (CICLESONIDE) (CICLESONIDE) [Concomitant]
  5. FLOVENT (FLUTICASONE PROPIONATE) (FLUTICASONE PROPIONATE) [Concomitant]

REACTIONS (5)
  - ABDOMINAL DISCOMFORT [None]
  - URTICARIA [None]
  - DIARRHOEA [None]
  - NAUSEA [None]
  - HEADACHE [None]
